FAERS Safety Report 23061780 (Version 3)
Quarter: 2024Q4

REPORT INFORMATION
  Report Type: Report from Study
  Country: BR (occurrence: BR)
  Receive Date: 20231013
  Receipt Date: 20241230
  Transmission Date: 20250115
  Serious: Yes (Hospitalization, Other)
  Sender: CELLTRION
  Company Number: BR-CELLTRION INC.-2023BR009646

PATIENT

DRUGS (4)
  1. INFLIXIMAB-DYYB [Suspect]
     Active Substance: INFLIXIMAB-DYYB
     Indication: Rheumatoid arthritis
     Dosage: 4 AMPOULES EVERY 2 MONTHS
     Route: 042
     Dates: start: 20221118
  2. INFLIXIMAB-DYYB [Suspect]
     Active Substance: INFLIXIMAB-DYYB
     Dosage: UNK
     Dates: start: 20230705
  3. METHOTREXATE [Concomitant]
     Active Substance: METHOTREXATE
     Indication: Rheumatoid arthritis
     Dosage: 15 MG A WEEK
     Route: 048
  4. ROSUVASTATIN [Concomitant]
     Active Substance: ROSUVASTATIN
     Indication: Product used for unknown indication
     Dosage: UNK
     Route: 065

REACTIONS (13)
  - Varicose vein [Recovering/Resolving]
  - Musculoskeletal stiffness [Recovering/Resolving]
  - Rhinitis allergic [Unknown]
  - Tonsillar hypertrophy [Recovering/Resolving]
  - Vascular insufficiency [Recovering/Resolving]
  - Symptom recurrence [Recovering/Resolving]
  - Headache [Unknown]
  - Pain [Unknown]
  - Headache [Unknown]
  - Influenza [Recovering/Resolving]
  - Influenza like illness [Recovering/Resolving]
  - Pain in extremity [Recovering/Resolving]
  - Intentional dose omission [Recovering/Resolving]

NARRATIVE: CASE EVENT DATE: 20230705
